FAERS Safety Report 12091701 (Version 11)
Quarter: 2019Q1

REPORT INFORMATION
  Report Type: Report from Study
  Country: US (occurrence: US)
  Receive Date: 20160218
  Receipt Date: 20190221
  Transmission Date: 20190417
  Serious: Yes (Other)
  Sender: FDA-Public Use
  Company Number: PHHY2016US019785

PATIENT
  Age: 49 Year
  Sex: Female

DRUGS (2)
  1. GILENYA [Suspect]
     Active Substance: FINGOLIMOD HYDROCHLORIDE
     Indication: MULTIPLE SCLEROSIS
     Dosage: UNK, QD
     Route: 048
  2. MIRALAX [Concomitant]
     Active Substance: POLYETHYLENE GLYCOL 3350
     Indication: PRODUCT USED FOR UNKNOWN INDICATION
     Dosage: 17 G, UNK
     Route: 065
     Dates: start: 20150520

REACTIONS (11)
  - Fatigue [Unknown]
  - Heat stroke [Unknown]
  - Dizziness exertional [Unknown]
  - Arthralgia [Unknown]
  - White blood cell count increased [Unknown]
  - Paraesthesia [Recovered/Resolved]
  - Contusion [Unknown]
  - Lymphocyte count decreased [Unknown]
  - Bladder pain [Unknown]
  - Back pain [Recovered/Resolved]
  - Burning sensation [Unknown]

NARRATIVE: CASE EVENT DATE: 20150520
